FAERS Safety Report 11061175 (Version 1)
Quarter: 2015Q2

REPORT INFORMATION
  Report Type: Spontaneous
  Country: GB (occurrence: GB)
  Receive Date: 20150424
  Receipt Date: 20150424
  Transmission Date: 20150821
  Serious: Yes (Other)
  Sender: FDA-Public Use
  Company Number: GB-ACCORD-030238

PATIENT
  Age: 29 Year
  Sex: Male
  Weight: 63.5 kg

DRUGS (10)
  1. SIMVASTATIN. [Concomitant]
     Active Substance: SIMVASTATIN
  2. PREDNISOLONE. [Concomitant]
     Active Substance: PREDNISOLONE
  3. TOPIRAMATE. [Concomitant]
     Active Substance: TOPIRAMATE
  4. MYCOPHENOLIC ACID. [Suspect]
     Active Substance: MYCOPHENOLIC ACID
     Indication: ALLERGIC GRANULOMATOUS ANGIITIS
     Route: 048
     Dates: start: 20140115, end: 20141021
  5. PERINDOPRIL ARGININE [Concomitant]
     Active Substance: PERINDOPRIL ARGININE
  6. CLOPIDOGREL [Concomitant]
     Active Substance: CLOPIDOGREL BISULFATE
  7. EPLERENONE. [Concomitant]
     Active Substance: EPLERENONE
  8. TERBINAFINE/TERBINAFINE HYDROCHLORIDE [Concomitant]
  9. OMEPRAZOLE. [Concomitant]
     Active Substance: OMEPRAZOLE
  10. BISOPROLOL [Concomitant]
     Active Substance: BISOPROLOL

REACTIONS (2)
  - Paranoia [Recovering/Resolving]
  - Off label use [Unknown]

NARRATIVE: CASE EVENT DATE: 20141001
